FAERS Safety Report 6155634-3 (Version None)
Quarter: 2009Q2

REPORT INFORMATION
  Report Type: 
  Country: None (occurrence: None)
  Receive Date: 20090415
  Receipt Date: 20090403
  Transmission Date: 20091009
  Serious: Yes (Hospitalization)
  Sender: FDA-Public Use
  Company Number: DE-WYE-H08864609

PATIENT
  Age: 27 Year
  Sex: Male

DRUGS (1)
  1. PANTOPRAZOLE SODIUM [Suspect]
     Route: 065
     Dates: start: 20090330, end: 20090401

REACTIONS (2)
  - HEPATOSPLENOMEGALY [None]
  - JAUNDICE [None]
